FAERS Safety Report 8936514 (Version 1)
Quarter: 2012Q4

REPORT INFORMATION
  Report Type: 
  Country: US (occurrence: US)
  Receive Date: 20121130
  Receipt Date: 20121130
  Transmission Date: 20130627
  Serious: Yes (Hospitalization)
  Sender: FDA-Public Use
  Company Number: US-JNJFOC-20121111456

PATIENT
  Age: 37 Year
  Sex: Female

DRUGS (1)
  1. TYLENOL PM [Suspect]
     Indication: PRODUCT USED FOR UNKNOWN INDICATION
     Dosage: uncertain, 6-8 tablets at night for five days
     Route: 048
     Dates: start: 20080902, end: 20080905

REACTIONS (2)
  - Liver injury [Recovering/Resolving]
  - Overdose [Unknown]
